FAERS Safety Report 23666991 (Version 1)
Quarter: 2024Q1

REPORT INFORMATION
  Report Type: Spontaneous
  Country: CA (occurrence: CA)
  Receive Date: 20240325
  Receipt Date: 20240325
  Transmission Date: 20240410
  Serious: Yes (Other)
  Sender: FDA-Public Use
  Company Number: None

PATIENT
  Age: 13 Year
  Sex: Male

DRUGS (2)
  1. NORDITROPIN [Suspect]
     Active Substance: SOMATROPIN
     Indication: Congenital osteodystrophy
     Dosage: DOSE- 2.0 MILLIGRAM; FREQUENCY- CYCLICAL
  2. NORDITROPIN [Suspect]
     Active Substance: SOMATROPIN
     Dosage: DOSE- 2.25 MILLIGRAM

REACTIONS (11)
  - Anxiety [Unknown]
  - Blood parathyroid hormone increased [Unknown]
  - Dizziness postural [Unknown]
  - Sleep disorder [Unknown]
  - Stress [Unknown]
  - Syncope [Unknown]
  - Tympanic membrane perforation [Unknown]
  - Arthralgia [Unknown]
  - Drug delivery system malfunction [Unknown]
  - Drug dose omission by device [Unknown]
  - Off label use [Unknown]
